FAERS Safety Report 15636622 (Version 1)
Quarter: 2018Q4

REPORT INFORMATION
  Report Type: Spontaneous
  Country: CA (occurrence: CA)
  Receive Date: 20181120
  Receipt Date: 20181120
  Transmission Date: 20190205
  Serious: Yes (Death, Other)
  Sender: FDA-Public Use
  Company Number: CA-BRISTOL-MYERS SQUIBB COMPANY-BMS-2018-105913

PATIENT
  Age: 42 Year
  Sex: Male
  Weight: 129 kg

DRUGS (1)
  1. ORENCIA [Suspect]
     Active Substance: ABATACEPT
     Indication: RHEUMATOID ARTHRITIS
     Dosage: UNK
     Route: 065

REACTIONS (22)
  - Mechanical ventilation [Fatal]
  - Acute kidney injury [Fatal]
  - Endotracheal intubation [Fatal]
  - Metabolic acidosis [Fatal]
  - Ventricular tachycardia [Fatal]
  - Vomiting [Fatal]
  - Acute myocardial infarction [Fatal]
  - Livedo reticularis [Fatal]
  - Chest pain [Fatal]
  - Compartment syndrome [Fatal]
  - Life support [Fatal]
  - Pulseless electrical activity [Fatal]
  - Tachycardia [Fatal]
  - Cardiac arrest [Fatal]
  - Axillary pain [Fatal]
  - Hyperhidrosis [Fatal]
  - Abdominal discomfort [Fatal]
  - Diarrhoea [Fatal]
  - Ischaemic hepatitis [Fatal]
  - Musculoskeletal chest pain [Fatal]
  - Cardiac dysfunction [Fatal]
  - Dyspnoea [Fatal]
